FAERS Safety Report 8889071 (Version 2)
Quarter: 2012Q4

REPORT INFORMATION
  Report Type: 
  Country: JP (occurrence: JP)
  Receive Date: 20121106
  Receipt Date: 20121204
  Transmission Date: 20130627
  Serious: Yes (Other)
  Sender: FDA-Public Use
  Company Number: JP-PFIZER INC-2012272140

PATIENT
  Age: 12 Year
  Sex: Female

DRUGS (4)
  1. GABAPEN [Suspect]
     Indication: EPILEPSY
     Dosage: UNK
     Route: 048
  2. CARBAMAZEPINE [Suspect]
     Indication: EPILEPSY
     Dosage: UNK
  3. CLOBAZAM [Suspect]
     Indication: EPILEPSY
     Dosage: UNK
     Route: 048
  4. ETHOSUXIMIDE [Suspect]
     Indication: EPILEPSY
     Dosage: UNK
     Route: 048

REACTIONS (1)
  - Lupus-like syndrome [Recovered/Resolved]
